FAERS Safety Report 25936644 (Version 1)
Quarter: 2025Q4

REPORT INFORMATION
  Report Type: Spontaneous
  Country: CN (occurrence: CN)
  Receive Date: 20251017
  Receipt Date: 20251017
  Transmission Date: 20260117
  Serious: Yes (Hospitalization)
  Sender: ROCHE
  Company Number: CN-BoehringerIngelheim-2025-BI-101005

PATIENT
  Age: 51 Year
  Sex: Male
  Weight: 75.0 kg

DRUGS (2)
  1. ALTEPLASE [Suspect]
     Active Substance: ALTEPLASE
     Indication: Thrombolysis
     Route: 042
     Dates: start: 20250925, end: 20250925
  2. ALTEPLASE [Suspect]
     Active Substance: ALTEPLASE
     Route: 042
     Dates: start: 20250925, end: 20250925

REACTIONS (6)
  - Cerebral haemorrhage [Unknown]
  - Heart rate decreased [Recovering/Resolving]
  - Blood pressure immeasurable [Recovering/Resolving]
  - Oxygen saturation immeasurable [Recovering/Resolving]
  - Restlessness [Unknown]
  - Muscle twitching [Unknown]

NARRATIVE: CASE EVENT DATE: 20250925
